FAERS Safety Report 4674048-6 (Version None)
Quarter: 2005Q2

REPORT INFORMATION
  Report Type: 
  Country: None (occurrence: None)
  Receive Date: 20050525
  Receipt Date: 20050511
  Transmission Date: 20051028
  Serious: Yes (Hospitalization)
  Sender: FDA-Public Use
  Company Number: S05-FRA-01713-01

PATIENT
  Age: 57 Year
  Sex: Male

DRUGS (4)
  1. AOTAL (ACAMPROSATE) [Suspect]
     Indication: ALCOHOLISM
     Dosage: 333 MG Q4HR PO
     Route: 048
     Dates: start: 20050331, end: 20050403
  2. DEPAKENE [Suspect]
     Indication: EPILEPSY
     Dosage: 500 MG TID PO
     Route: 048
     Dates: start: 20050331, end: 20050405
  3. VITAMIN B1 AND B6 [Suspect]
     Indication: ALCOHOLISM
     Dosage: 1 QID PO
     Route: 048
     Dates: start: 20050331, end: 20050403
  4. VALIUM [Suspect]
     Indication: ALCOHOLISM
     Dosage: 10 MG QID PO
     Route: 048
     Dates: start: 20050331, end: 20050402

REACTIONS (7)
  - ASPARTATE AMINOTRANSFERASE INCREASED [None]
  - BLOOD BILIRUBIN INCREASED [None]
  - ENCEPHALOPATHY [None]
  - PROTHROMBIN LEVEL DECREASED [None]
  - RENAL FAILURE [None]
  - SOMNOLENCE [None]
  - THROMBOCYTOPENIA [None]
